FAERS Safety Report 4297385-6 (Version None)
Quarter: 2004Q1

REPORT INFORMATION
  Report Type: 
  Country: None (occurrence: None)
  Receive Date: 20040213
  Receipt Date: 20040130
  Transmission Date: 20041129
  Serious: Yes (Disabling, Other)
  Sender: FDA-Public Use
  Company Number: 204243

PATIENT
  Age: 12 Year
  Sex: Male

DRUGS (4)
  1. NUTROPIN AQ [Suspect]
     Dosage: 2.07 MG, QD, SUBCUTANEOUS
     Route: 058
     Dates: start: 19970101, end: 20031001
  2. BICITRA (CITRIC ACID, SODIUM CITRATE) [Concomitant]
  3. DIURIL (CHLOROTHIAZIDE) [Concomitant]
  4. NEUTRA-PHOS (POTASSIUM PHOSPHATE, DIBASIC, POTASSIUM PHOSPHATE, MONOBA [Concomitant]

REACTIONS (2)
  - BONE SARCOMA [None]
  - CHONDROSARCOMA [None]
